FAERS Safety Report 5634646-X (Version None)
Quarter: 2008Q1

REPORT INFORMATION
  Report Type: 
  Country: None (occurrence: None)
  Receive Date: 20080222
  Receipt Date: 20080219
  Transmission Date: 20080703
  Serious: Yes (Life-Threatening, Hospitalization)
  Sender: FDA-Public Use
  Company Number: DE-ASTRAZENECA-2008PK00342

PATIENT
  Age: 28334 Day
  Sex: Male

DRUGS (26)
  1. ACERCOMP [Suspect]
     Indication: HYPERTENSION
     Route: 048
     Dates: start: 20040717, end: 20040809
  2. PULMICORT [Suspect]
     Indication: CHRONIC OBSTRUCTIVE PULMONARY DISEASE
     Dosage: TWO INHALATIONS DAILY
     Route: 055
     Dates: start: 20040717, end: 20040814
  3. URBASON [Suspect]
     Indication: CHRONIC OBSTRUCTIVE PULMONARY DISEASE
     Dosage: 116 MG DAILY
     Dates: start: 20040708, end: 20040805
  4. NORVASC [Suspect]
     Indication: HYPERTENSION
     Dates: start: 20040717, end: 20040809
  5. NEBILET [Suspect]
     Indication: TACHYCARDIA
     Dosage: 10 UNTIL 15 MG DAILY
     Dates: start: 20040714, end: 20040814
  6. LOPIRIN [Suspect]
     Indication: HYPERTENSION
     Dosage: 5 UNTIL 10 MG DAILY
     Dates: start: 20040714, end: 20040814
  7. PANTOZOL [Suspect]
     Indication: PROPHYLAXIS
     Dates: start: 20040708, end: 20040814
  8. ASPIRIN [Suspect]
     Indication: PROPHYLAXIS
     Dates: start: 20040717, end: 20040814
  9. FORADIL [Suspect]
     Indication: CHRONIC OBSTRUCTIVE PULMONARY DISEASE
     Dosage: TWO INHALATIONS DAILY
     Dates: start: 20040726, end: 20040814
  10. CLEXANE [Suspect]
     Indication: PROPHYLAXIS
     Dosage: ONE UNTIL TWO DF DAILY
     Route: 058
     Dates: start: 20040728, end: 20040806
  11. ACETYLCYSTEINE [Suspect]
     Indication: BRONCHIAL SECRETION RETENTION
     Route: 048
     Dates: start: 20040728, end: 20040814
  12. PARACODIN BITARTRATE TAB [Suspect]
     Indication: COUGH
     Route: 048
     Dates: start: 20040729, end: 20040807
  13. TOREM [Suspect]
     Indication: CARDIAC FAILURE
     Dosage: 0.5 UNTIL 1 DF DAILY
     Route: 048
     Dates: start: 20040730, end: 20040809
  14. DICODID [Suspect]
     Indication: CHRONIC OBSTRUCTIVE PULMONARY DISEASE
     Dosage: 0.5 VIAL
     Route: 058
     Dates: start: 20040803, end: 20040803
  15. CEPHORAL [Suspect]
     Indication: CHRONIC OBSTRUCTIVE PULMONARY DISEASE
     Route: 048
     Dates: start: 20040803, end: 20040814
  16. BERODUAL [Concomitant]
     Indication: CHRONIC OBSTRUCTIVE PULMONARY DISEASE
     Dosage: TWO INHALATIONS BID
     Dates: start: 20040717, end: 20040725
  17. TRAMAL [Concomitant]
     Indication: PAIN
     Dates: start: 20040728, end: 20040728
  18. POTASSIUM CHLORIDE [Concomitant]
     Indication: VITAMIN K
     Route: 048
     Dates: start: 20040803, end: 20040809
  19. ALDACTONE [Concomitant]
     Indication: CARDIAC FAILURE
     Dates: start: 20040806, end: 20040809
  20. AMLODIPINE [Concomitant]
     Indication: HYPERTENSION
     Route: 048
     Dates: start: 20040810, end: 20040814
  21. ATROVENT [Concomitant]
     Indication: CHRONIC OBSTRUCTIVE PULMONARY DISEASE
     Dates: start: 20040810, end: 20040814
  22. BRONCHO INHALAT [Concomitant]
     Indication: CHRONIC OBSTRUCTIVE PULMONARY DISEASE
     Dates: start: 20040810, end: 20040814
  23. TORSEMIDE [Concomitant]
     Indication: CARDIAC FAILURE
     Route: 048
     Dates: start: 20040810, end: 20040814
  24. SPIRONOLACTONE [Concomitant]
     Indication: CARDIAC FAILURE
     Route: 048
     Dates: start: 20040810, end: 20040814
  25. LISIPLUS [Concomitant]
     Indication: HYPERTENSION
     Dosage: 20/12.5 MG DAILY
     Route: 048
     Dates: start: 20040810, end: 20040814
  26. KALITRANS [Concomitant]
     Indication: VITAMIN K
     Route: 048
     Dates: start: 20040810, end: 20040815

REACTIONS (1)
  - STEVENS-JOHNSON SYNDROME [None]
